FAERS Safety Report 10387439 (Version 2)
Quarter: 2014Q4

REPORT INFORMATION
  Report Type: Spontaneous
  Country: US (occurrence: US)
  Receive Date: 20140815
  Receipt Date: 20141205
  Transmission Date: 20150528
  Serious: Yes (Hospitalization)
  Sender: FDA-Public Use
  Company Number: US-BAYER-2014-119886

PATIENT
  Age: 18 Year
  Sex: Female

DRUGS (4)
  1. ORTHO EVRA [Concomitant]
     Active Substance: ETHINYL ESTRADIOL\NORELGESTROMIN
     Dosage: UNK
     Dates: start: 20120306, end: 20131015
  2. LORTAB [Concomitant]
     Active Substance: ACETAMINOPHEN\HYDROCODONE BITARTRATE
     Indication: ABDOMINAL PAIN UPPER
     Dosage: UNK
     Dates: start: 200501
  3. XANAX [Concomitant]
     Active Substance: ALPRAZOLAM
     Indication: NERVOUS SYSTEM DISORDER
     Dosage: UNK
     Dates: start: 2006
  4. MIRENA [Suspect]
     Active Substance: LEVONORGESTREL
     Dosage: 20 MCG/24HR, CONT
     Route: 015
     Dates: start: 20120314, end: 20120823

REACTIONS (15)
  - Internal injury [None]
  - Medical device complication [None]
  - Depression [None]
  - Uterine perforation [None]
  - Genital haemorrhage [None]
  - Off label use [None]
  - Emotional distress [None]
  - Fear [None]
  - Abdominal pain [None]
  - Injury [None]
  - Medical device discomfort [None]
  - Device issue [None]
  - Depressed mood [None]
  - Pelvic pain [None]
  - Anxiety [None]

NARRATIVE: CASE EVENT DATE: 201208
